FAERS Safety Report 17749672 (Version 1)
Quarter: 2020Q2

REPORT INFORMATION
  Report Type: Spontaneous
  Country: US (occurrence: US)
  Receive Date: 20200506
  Receipt Date: 20200506
  Transmission Date: 20200714
  Serious: Yes (Hospitalization, Other)
  Sender: FDA-Public Use
  Company Number: US-ACCORD-180521

PATIENT
  Age: 66 Year
  Sex: Male

DRUGS (4)
  1. OXALIPLATIN. [Suspect]
     Active Substance: OXALIPLATIN
     Indication: COLON CANCER
     Dosage: CHEMOTHERAPY REGIMEN DOSE WAS CUT IN HALF
  2. FLUOROURACIL. [Suspect]
     Active Substance: FLUOROURACIL
     Indication: COLON CANCER
     Dosage: ON DAY 1, FOLLOWED BY 1200 MG/M2?/DAY X 2 DAYS (TOTAL 2400 MG/M2 OVER 46-48 HOURS)
  3. FOLINIC ACID [Suspect]
     Active Substance: LEUCOVORIN
     Indication: COLON CANCER
     Dosage: CHEMOTHERAPY REGIMEN DOSE WAS CUT IN HALF
  4. BEVACIZUMAB. [Suspect]
     Active Substance: BEVACIZUMAB
     Indication: COLON CANCER
     Dosage: CHEMOTHERAPY REGIMEN DOSE WAS CUT IN HALF

REACTIONS (2)
  - Acute kidney injury [Recovered/Resolved]
  - Hyperammonaemic encephalopathy [Recovered/Resolved]
